FAERS Safety Report 12832389 (Version 1)
Quarter: 2016Q4

REPORT INFORMATION
  Report Type: Spontaneous
  Country: US (occurrence: US)
  Receive Date: 20161010
  Receipt Date: 20161010
  Transmission Date: 20170207
  Serious: No
  Sender: FDA-Public Use
  Company Number: US-JAZZ-2016-US-013225

PATIENT
  Sex: Female

DRUGS (44)
  1. XYREM [Suspect]
     Active Substance: SODIUM OXYBATE
     Indication: NARCOLEPSY
     Dosage: 2.25 G, BID
     Route: 048
     Dates: start: 201206, end: 201207
  2. CONCERTA [Concomitant]
     Active Substance: METHYLPHENIDATE HYDROCHLORIDE
  3. LEVAQUIN [Concomitant]
     Active Substance: LEVOFLOXACIN
  4. RETIN-A [Concomitant]
     Active Substance: TRETINOIN
  5. WELLBUTRIN [Concomitant]
     Active Substance: BUPROPION HYDROCHLORIDE
  6. LASIX [Concomitant]
     Active Substance: FUROSEMIDE
  7. STOOL SOFTENER (DOCUSATE CALCIUM) [Concomitant]
     Active Substance: DOCUSATE CALCIUM
  8. NASONEX [Concomitant]
     Active Substance: MOMETASONE FUROATE
  9. XYREM [Suspect]
     Active Substance: SODIUM OXYBATE
     Indication: CATAPLEXY
     Dosage: 3 G, BID
     Route: 048
     Dates: start: 201207, end: 201211
  10. XYREM [Suspect]
     Active Substance: SODIUM OXYBATE
     Dosage: 4.5 G, BID
     Route: 048
     Dates: start: 201211, end: 2015
  11. IBUPROFEN. [Concomitant]
     Active Substance: IBUPROFEN
  12. GEODON [Concomitant]
     Active Substance: ZIPRASIDONE HYDROCHLORIDE\ZIPRASIDONE MESYLATE
  13. EVOXAC [Concomitant]
     Active Substance: CEVIMELINE HYDROCHLORIDE
  14. FIBER [Concomitant]
     Active Substance: PSYLLIUM HUSK
  15. MULTIVITAMIN WITH MINERALS [Concomitant]
     Active Substance: MINERALS\VITAMINS
  16. SALINE [Concomitant]
     Active Substance: SODIUM CHLORIDE
  17. VENTOLIN HFA [Concomitant]
     Active Substance: ALBUTEROL SULFATE
  18. LYRICA [Concomitant]
     Active Substance: PREGABALIN
  19. HYDROCODONE/ACETAMINOPHEN [Concomitant]
     Active Substance: ACETAMINOPHEN\HYDROCODONE
  20. ALBUTEROL. [Concomitant]
     Active Substance: ALBUTEROL
  21. OCUVITE [Concomitant]
     Active Substance: VITAMINS
  22. TOPAMAX [Concomitant]
     Active Substance: TOPIRAMATE
  23. METHYLPHENIDATE. [Concomitant]
     Active Substance: METHYLPHENIDATE
  24. NYSTATIN. [Concomitant]
     Active Substance: NYSTATIN
  25. FISH OIL [Concomitant]
     Active Substance: FISH OIL
  26. FLUOXETINE HCL [Concomitant]
     Active Substance: FLUOXETINE HYDROCHLORIDE
  27. PRAMIPEXOLE. [Concomitant]
     Active Substance: PRAMIPEXOLE
  28. LORAZEPAM. [Concomitant]
     Active Substance: LORAZEPAM
  29. CLONAZEPAM. [Concomitant]
     Active Substance: CLONAZEPAM
  30. FUROSEMIDE. [Concomitant]
     Active Substance: FUROSEMIDE
  31. NUVIGIL [Concomitant]
     Active Substance: ARMODAFINIL
  32. OXYCODONE AND ACETAMINOPHEN [Concomitant]
     Active Substance: ACETAMINOPHEN\OXYCODONE HYDROCHLORIDE
  33. RESTASIS [Concomitant]
     Active Substance: CYCLOSPORINE
  34. CALCIUM +D [Concomitant]
     Active Substance: CALCIUM\VITAMIN D
  35. TRIAMCINOLONE [Concomitant]
     Active Substance: TRIAMCINOLONE
  36. VICODIN [Concomitant]
     Active Substance: ACETAMINOPHEN\HYDROCODONE BITARTRATE
  37. BIOFREEZE [Concomitant]
     Active Substance: MENTHOL
  38. XYREM [Suspect]
     Active Substance: SODIUM OXYBATE
     Dosage: 4.5 G, BID
     Route: 048
     Dates: start: 201601
  39. SILVADENE [Concomitant]
     Active Substance: SILVER SULFADIAZINE
  40. PERCOCET [Concomitant]
     Active Substance: ACETAMINOPHEN\OXYCODONE HYDROCHLORIDE
  41. ARICEPT [Concomitant]
     Active Substance: DONEPEZIL HYDROCHLORIDE
  42. MAGNESIUM OXIDE. [Concomitant]
     Active Substance: MAGNESIUM OXIDE
  43. CLOTRIMAZOLE. [Concomitant]
     Active Substance: CLOTRIMAZOLE
  44. SINGULAIR [Concomitant]
     Active Substance: MONTELUKAST SODIUM

REACTIONS (2)
  - Therapeutic response unexpected [Unknown]
  - Pre-existing condition improved [Unknown]
